FAERS Safety Report 8239834-4 (Version None)
Quarter: 2012Q1

REPORT INFORMATION
  Report Type: 
  Country: None (occurrence: None)
  Receive Date: 20120328
  Receipt Date: 20120320
  Transmission Date: 20120608
  Serious: Yes (Hospitalization)
  Sender: FDA-Public Use
  Company Number: PHEH2012US002420

PATIENT
  Sex: Male

DRUGS (1)
  1. CLOZAPINE [Suspect]
     Indication: SCHIZOAFFECTIVE DISORDER
     Dosage: 700 MG, QD
     Route: 048
     Dates: start: 20091001

REACTIONS (6)
  - VISUAL IMPAIRMENT [None]
  - AGGRESSION [None]
  - PARANOIA [None]
  - MOOD SWINGS [None]
  - ANGER [None]
  - DRUG INEFFECTIVE [None]
